FAERS Safety Report 8481242-5 (Version None)
Quarter: 2012Q3

REPORT INFORMATION
  Report Type: 
  Country: None (occurrence: None)
  Receive Date: 20120702
  Receipt Date: 20120622
  Transmission Date: 20120928
  Serious: Yes (Other)
  Sender: FDA-Public Use
  Company Number: US-JNJFOC-20120520928

PATIENT
  Sex: Female

DRUGS (4)
  1. NADOLOL [Suspect]
     Indication: HEART RATE INCREASED
     Route: 048
     Dates: start: 20100101, end: 20100101
  2. HALDOL [Suspect]
     Indication: HEART RATE INCREASED
     Route: 048
     Dates: start: 20100101, end: 20100101
  3. VERAPAMIL [Concomitant]
     Route: 065
  4. INSULIN [Concomitant]
     Indication: DIABETES MELLITUS
     Route: 065
     Dates: end: 19820101

REACTIONS (3)
  - MIDDLE INSOMNIA [None]
  - OFF LABEL USE [None]
  - HEART RATE DECREASED [None]
